FAERS Safety Report 6265876-4 (Version None)
Quarter: 2009Q3

REPORT INFORMATION
  Report Type: 
  Country: None (occurrence: None)
  Receive Date: 20090708
  Receipt Date: 20090708
  Transmission Date: 20100115
  Serious: Yes (Hospitalization)
  Sender: FDA-Public Use
  Company Number: None

PATIENT
  Sex: Female
  Weight: 55 kg

DRUGS (1)
  1. GEMCITABINE HCL [Suspect]
     Dosage: 2496 MG

REACTIONS (2)
  - HAEMOGLOBIN DECREASED [None]
  - URINARY TRACT INFECTION [None]
